FAERS Safety Report 7595260-2 (Version None)
Quarter: 2011Q3

REPORT INFORMATION
  Report Type: 
  Country: None (occurrence: None)
  Receive Date: 20110707
  Receipt Date: 20110701
  Transmission Date: 20111222
  Serious: Yes (Hospitalization)
  Sender: FDA-Public Use
  Company Number: US-SANOFI-AVENTIS-2011SA032030

PATIENT
  Age: 81 Year
  Sex: Female
  Weight: 62 kg

DRUGS (6)
  1. NITROGLYCERIN [Concomitant]
  2. PLAVIX [Suspect]
     Indication: THROMBOSIS PROPHYLAXIS
     Route: 048
     Dates: start: 20100901
  3. OMEPRAZOLE [Concomitant]
     Route: 065
  4. ROSUVASTATIN CALCIUM [Concomitant]
     Dates: start: 20110211
  5. VALSARTAN [Concomitant]
  6. CARVEDILOL [Concomitant]

REACTIONS (7)
  - RASH PRURITIC [None]
  - HYPOTENSION [None]
  - ERYTHEMA [None]
  - PIGMENTATION DISORDER [None]
  - LOSS OF CONSCIOUSNESS [None]
  - SWELLING FACE [None]
  - BRADYCARDIA [None]
